FAERS Safety Report 15465320 (Version 10)
Quarter: 2019Q1

REPORT INFORMATION
  Report Type: Report from Study
  Country: US (occurrence: US)
  Receive Date: 20181004
  Receipt Date: 20190214
  Transmission Date: 20190417
  Serious: Yes (Hospitalization, Other)
  Sender: FDA-Public Use
  Company Number: US-GILEAD-2018-0365952

PATIENT
  Age: 65 Year
  Sex: Female

DRUGS (4)
  1. AMBRISENTAN [Suspect]
     Active Substance: AMBRISENTAN
     Indication: PRODUCT USED FOR UNKNOWN INDICATION
     Dosage: 10 MG, QD
     Route: 065
     Dates: start: 20151120
  2. TYVASO [Concomitant]
     Active Substance: TREPROSTINIL
  3. TADALAFIL. [Concomitant]
     Active Substance: TADALAFIL
  4. ORENITRAM [Concomitant]
     Active Substance: TREPROSTINIL

REACTIONS (16)
  - Ill-defined disorder [Unknown]
  - Oedema peripheral [Not Recovered/Not Resolved]
  - Pollakiuria [Not Recovered/Not Resolved]
  - Fluid retention [Unknown]
  - Pneumonia [Unknown]
  - Diarrhoea [Recovered/Resolved]
  - Headache [Not Recovered/Not Resolved]
  - Dyspepsia [Not Recovered/Not Resolved]
  - Gout [Not Recovered/Not Resolved]
  - Chest discomfort [Unknown]
  - Nausea [Recovered/Resolved]
  - Catheterisation cardiac [Unknown]
  - Nausea [Not Recovered/Not Resolved]
  - Decreased appetite [Not Recovered/Not Resolved]
  - Nausea [Unknown]
  - Diarrhoea [Not Recovered/Not Resolved]

NARRATIVE: CASE EVENT DATE: 201810
